FAERS Safety Report 25932047 (Version 1)
Quarter: 2025Q4

REPORT INFORMATION
  Report Type: Spontaneous
  Country: JP (occurrence: JP)
  Receive Date: 20251016
  Receipt Date: 20251016
  Transmission Date: 20260117
  Serious: Yes (Hospitalization, Other)
  Sender: UCB
  Company Number: JP-UCBJ-CD202513681UCBPHAPROD

PATIENT
  Weight: 60 kg

DRUGS (1)
  1. RYSTIGGO [Suspect]
     Active Substance: ROZANOLIXIZUMAB-NOLI
     Indication: Myasthenia gravis
     Dosage: 3 MILLILITER, WEEKLY (QW)

REACTIONS (1)
  - Myasthenia gravis crisis [Not Recovered/Not Resolved]
